FAERS Safety Report 18455034 (Version 2)
Quarter: 2021Q1

REPORT INFORMATION
  Report Type: Spontaneous
  Country: US (occurrence: US)
  Receive Date: 20201103
  Receipt Date: 20210122
  Transmission Date: 20210419
  Serious: Yes (Other)
  Sender: FDA-Public Use
  Company Number: US-GILEAD-2020-0501537

PATIENT
  Age: 62 Year
  Sex: Male

DRUGS (2)
  1. TRUVADA [Suspect]
     Active Substance: EMTRICITABINE\TENOFOVIR DISOPROXIL FUMARATE
     Indication: HIV INFECTION
     Dosage: UNK
     Route: 048
     Dates: start: 20040801, end: 20130601
  2. STRIBILD [Suspect]
     Active Substance: COBICISTAT\ELVITEGRAVIR\EMTRICITABINE\TENOFOVIR DISOPROXIL FUMARATE
     Indication: HIV INFECTION
     Dosage: UNK
     Route: 048
     Dates: start: 20130901, end: 20151001

REACTIONS (12)
  - Anhedonia [Unknown]
  - Anxiety [Unknown]
  - Bone loss [Unknown]
  - Femur fracture [Recovered/Resolved]
  - Osteonecrosis [Unknown]
  - Fanconi syndrome acquired [Not Recovered/Not Resolved]
  - Bone density abnormal [Unknown]
  - Bone density decreased [Unknown]
  - Emotional distress [Unknown]
  - Chronic kidney disease [Unknown]
  - Osteopenia [Not Recovered/Not Resolved]
  - Pain [Unknown]

NARRATIVE: CASE EVENT DATE: 20130101
